FAERS Safety Report 25192976 (Version 2)
Quarter: 2025Q2

REPORT INFORMATION
  Report Type: Spontaneous
  Country: FR (occurrence: FR)
  Receive Date: 20250414
  Receipt Date: 20250507
  Transmission Date: 20250717
  Serious: No
  Sender: GLAXOSMITHKLINE
  Company Number: FR-GSK-FR2025EME043306

PATIENT

DRUGS (1)
  1. LAMICTAL [Suspect]
     Active Substance: LAMOTRIGINE
     Indication: Product used for unknown indication

REACTIONS (4)
  - Lymphadenopathy [Unknown]
  - Rash [Unknown]
  - Pyrexia [Unknown]
  - Oropharyngeal pain [Unknown]
